FAERS Safety Report 7629327-7 (Version None)
Quarter: 2011Q3

REPORT INFORMATION
  Report Type: 
  Country: None (occurrence: None)
  Receive Date: 20110722
  Receipt Date: 20110715
  Transmission Date: 20111222
  Serious: Yes (Other)
  Sender: FDA-Public Use
  Company Number: US-BAYER-2011-015099

PATIENT
  Sex: Female

DRUGS (2)
  1. YASMIN [Suspect]
     Indication: PRODUCT USED FOR UNKNOWN INDICATION
     Dosage: UNK
     Route: 048
     Dates: start: 20040101
  2. YAZ [Suspect]
     Dosage: UNK
     Route: 048
     Dates: start: 20040101

REACTIONS (7)
  - PAIN [None]
  - EMOTIONAL DISTRESS [None]
  - ANXIETY [None]
  - CEREBROVASCULAR ACCIDENT [None]
  - INJURY [None]
  - CEREBRAL INFARCTION [None]
  - PSYCHIATRIC SYMPTOM [None]
